FAERS Safety Report 10922889 (Version 2)
Quarter: 2015Q2

REPORT INFORMATION
  Report Type: Report from Study
  Country: US (occurrence: US)
  Receive Date: 20150317
  Receipt Date: 20150520
  Transmission Date: 20150821
  Serious: Yes (Hospitalization)
  Sender: FDA-Public Use
  Company Number: US-ACTELION-A-US2015-114497

PATIENT
  Age: 86 Year
  Sex: Female

DRUGS (1)
  1. TRACLEER [Suspect]
     Active Substance: BOSENTAN\BOSENTAN MONOHYDRATE
     Indication: PULMONARY ARTERIAL HYPERTENSION
     Dosage: 125 UNK, UNK
     Route: 048

REACTIONS (3)
  - Intestinal haemorrhage [Unknown]
  - Clostridium difficile infection [Unknown]
  - Respiratory rate decreased [Unknown]
